FAERS Safety Report 8173257-1 (Version None)
Quarter: 2012Q1

REPORT INFORMATION
  Report Type: 
  Country: None (occurrence: None)
  Receive Date: 20120229
  Receipt Date: 20120221
  Transmission Date: 20120608
  Serious: Yes (Other)
  Sender: FDA-Public Use
  Company Number: CA-JNJFOC-20120211479

PATIENT
  Sex: Male
  Weight: 90.72 kg

DRUGS (2)
  1. DOVOBET [Concomitant]
     Route: 065
  2. REMICADE [Suspect]
     Indication: PSORIASIS
     Route: 042
     Dates: start: 20090101

REACTIONS (1)
  - DIABETES MELLITUS [None]
